FAERS Safety Report 6349061-3 (Version None)
Quarter: 2009Q3

REPORT INFORMATION
  Report Type: 
  Country: None (occurrence: None)
  Receive Date: 20090911
  Receipt Date: 20090902
  Transmission Date: 20100115
  Serious: Yes (Other)
  Sender: FDA-Public Use
  Company Number: JP-AVENTIS-200912478JP

PATIENT
  Age: 73 Year
  Sex: Female

DRUGS (5)
  1. RILUTEK [Suspect]
     Route: 048
     Dates: start: 20080828
  2. METHYCOBAL                         /00056201/ [Concomitant]
  3. VITAMIN B NOS [Concomitant]
  4. MAGMITT [Concomitant]
  5. LAXOBERON [Concomitant]

REACTIONS (1)
  - PEMPHIGOID [None]
